FAERS Safety Report 9712877 (Version 1)
Quarter: 2013Q4

REPORT INFORMATION
  Report Type: Spontaneous
  Country: US (occurrence: US)
  Receive Date: 20131126
  Receipt Date: 20131126
  Transmission Date: 20140711
  Serious: No
  Sender: FDA-Public Use
  Company Number: US-BRISTOL-MYERS SQUIBB COMPANY-19319730

PATIENT
  Age: 67 Year
  Sex: Female
  Weight: 106.12 kg

DRUGS (3)
  1. BYDUREON 2MG SUSPENSION [Suspect]
     Indication: TYPE 2 DIABETES MELLITUS
     Dosage: 5TH INJECTION ON 30AUG13
     Route: 058
     Dates: start: 20130802
  2. NOVOLOG [Concomitant]
     Dosage: NOVOLOG 70/30
  3. LEVEMIR [Concomitant]

REACTIONS (5)
  - Fatigue [Unknown]
  - Nausea [Not Recovered/Not Resolved]
  - Eructation [Unknown]
  - Weight decreased [Unknown]
  - Somnolence [Unknown]
